APPROVED DRUG PRODUCT: ETHRIL 500
Active Ingredient: ERYTHROMYCIN STEARATE
Strength: EQ 500MG BASE
Dosage Form/Route: TABLET;ORAL
Application: A061605 | Product #002
Applicant: BRISTOL MYERS SQUIBB CO
Approved: Approved Prior to Jan 1, 1982 | RLD: No | RS: No | Type: DISCN